FAERS Safety Report 5588494-X (Version None)
Quarter: 2008Q1

REPORT INFORMATION
  Report Type: 
  Country: None (occurrence: None)
  Receive Date: 20080111
  Receipt Date: 20080102
  Transmission Date: 20080703
  Serious: Yes (Hospitalization)
  Sender: FDA-Public Use
  Company Number: FR-ROCHE-539354

PATIENT
  Age: 75 Year
  Sex: Male

DRUGS (5)
  1. KYTRIL [Suspect]
     Indication: PREMEDICATION
     Dosage: FORMULATION: INJECTABLE SOLUTION
     Route: 042
     Dates: start: 20070226, end: 20070301
  2. PLITICAN [Suspect]
     Indication: PREMEDICATION
     Route: 065
     Dates: start: 20070226, end: 20070301
  3. SOLU-MEDROL [Suspect]
     Indication: PREMEDICATION
     Dosage: FORMULATION: INJECTABLE SOLUTION
     Route: 042
     Dates: start: 20070226, end: 20070301
  4. CARBOPLATIN [Suspect]
     Dosage: DRUG NAME: CARBOPLATIN TEVA, FORMULATION: INJECTABLE SOLUTION
     Route: 042
     Dates: start: 20070226, end: 20070301
  5. FLUOROURACILE TEVA [Suspect]
     Dosage: STRENGTH: 1000 MG/ 20, FORMULATION: INJECTABLE SOLUTION
     Route: 042
     Dates: start: 20070226, end: 20070301

REACTIONS (3)
  - DRUG ERUPTION [None]
  - PURPURA [None]
  - RASH ERYTHEMATOUS [None]
